FAERS Safety Report 5115493-4 (Version None)
Quarter: 2006Q3

REPORT INFORMATION
  Report Type: 
  Country: None (occurrence: None)
  Receive Date: 20060927
  Receipt Date: 20060823
  Transmission Date: 20061208
  Serious: Yes (Hospitalization, Other)
  Sender: FDA-Public Use
  Company Number: PHBS2006ZA12824

PATIENT
  Age: 61 Year
  Sex: Female

DRUGS (11)
  1. LIORESAL [Suspect]
     Indication: MIGRAINE
     Dosage: 25 MG/DAY
     Route: 048
     Dates: start: 20000101, end: 20060814
  2. LIORESAL [Suspect]
     Dosage: 10 MG, BID
     Route: 048
     Dates: start: 20060823
  3. LIPITOR [Concomitant]
     Dosage: 40 MG/DAY
     Route: 065
  4. TRISEQUENS [Concomitant]
     Dosage: UNK, QD
     Route: 065
  5. ECOTRIN [Concomitant]
  6. CALCITRIOL [Concomitant]
  7. NEXIUM [Concomitant]
     Dosage: 20 MG/DAY
     Route: 065
  8. LASIX [Concomitant]
  9. ROYL 6 [Concomitant]
  10. CALCIUM ACETATE [Concomitant]
     Dosage: 660 MG, BID
     Route: 065
  11. DIALYSIS [Concomitant]

REACTIONS (12)
  - ANXIETY [None]
  - BLOOD CALCIUM INCREASED [None]
  - CONVULSION [None]
  - DELIRIUM [None]
  - DYSKINESIA [None]
  - EYE MOVEMENT DISORDER [None]
  - FISTULA [None]
  - FISTULA REPAIR [None]
  - HALLUCINATION [None]
  - INCOHERENT [None]
  - TACHYCARDIA [None]
  - TREMOR [None]
